FAERS Safety Report 10612064 (Version 1)
Quarter: 2014Q4

REPORT INFORMATION
  Report Type: Spontaneous
  Country: TR (occurrence: TR)
  Receive Date: 20141126
  Receipt Date: 20141126
  Transmission Date: 20150529
  Serious: Yes (Hospitalization)
  Sender: FDA-Public Use
  Company Number: PHHY2014TR153552

PATIENT
  Age: 23 Year
  Sex: Male

DRUGS (1)
  1. LEVETIRACETAM. [Suspect]
     Active Substance: LEVETIRACETAM
     Indication: SEIZURE
     Dosage: 500 MG, UNK
     Route: 065

REACTIONS (5)
  - Hypokalaemia [Recovered/Resolved]
  - Renal tubular disorder [Unknown]
  - Fatigue [Unknown]
  - Hypomagnesaemia [Recovered/Resolved]
  - Palpitations [Unknown]
